FAERS Safety Report 5156047-3 (Version None)
Quarter: 2006Q4

REPORT INFORMATION
  Report Type: 
  Country: None (occurrence: None)
  Receive Date: 20061114
  Receipt Date: 20061101
  Transmission Date: 20070319
  Serious: Yes (Hospitalization)
  Sender: FDA-Public Use
  Company Number: 2006BI014970

PATIENT
  Age: 56 Year
  Sex: Female

DRUGS (14)
  1. NATALIZUMAB [Suspect]
     Indication: MULTIPLE SCLEROSIS
     Dosage: 300 MG;QM;IV
     Route: 042
     Dates: start: 20050210, end: 20050201
  2. NATALIZUMAB [Suspect]
     Indication: MULTIPLE SCLEROSIS
     Dosage: 300 MG;QM;IV
     Route: 042
     Dates: start: 20060914, end: 20061014
  3. FLOMAX [Concomitant]
  4. OXYTROL [Concomitant]
  5. PREMARIN [Concomitant]
  6. OMEPRAZOLE [Concomitant]
  7. LISINOPRIL [Concomitant]
  8. METFORMIN [Concomitant]
  9. LIPITOR [Concomitant]
  10. BUDEPRION SR [Concomitant]
  11. ALPHAGAN [Concomitant]
  12. ALCON (OPTIC) [Concomitant]
  13. LYRICA [Concomitant]
  14. CYMBALTA [Concomitant]

REACTIONS (7)
  - CHEST PAIN [None]
  - GENERALISED ERYTHEMA [None]
  - HYPERSENSITIVITY [None]
  - INFUSION RELATED REACTION [None]
  - PRURITUS GENERALISED [None]
  - URTICARIA [None]
  - WHEEZING [None]
